FAERS Safety Report 6370067-2 (Version None)
Quarter: 2009Q3

REPORT INFORMATION
  Report Type: 
  Country: None (occurrence: None)
  Receive Date: 20090923
  Receipt Date: 20070514
  Transmission Date: 20100115
  Serious: Yes (Hospitalization, Congenital Anomaly, Other)
  Sender: FDA-Public Use
  Company Number: US-ASTRAZENECA-2006UW21248

PATIENT
  Age: 40 Year
  Sex: Female
  Weight: 61.2 kg

DRUGS (24)
  1. SEROQUEL [Suspect]
     Indication: ANXIETY
     Route: 048
     Dates: start: 20060208
  2. SEROQUEL [Suspect]
     Indication: DEPRESSION
     Route: 048
     Dates: start: 20060208
  3. SEROQUEL [Suspect]
     Dosage: 300MG - 600 MG
     Route: 048
     Dates: start: 20060217
  4. SEROQUEL [Suspect]
     Dosage: 300MG - 600 MG
     Route: 048
     Dates: start: 20060217
  5. METFORMIN HCL [Concomitant]
     Route: 065
  6. ACETAMINOPHEN [Concomitant]
     Route: 065
  7. NAPROXEN [Concomitant]
     Route: 065
  8. KEFLEX [Concomitant]
     Dosage: 4 TIMES A DAY
     Route: 065
  9. PREMARIN [Concomitant]
     Route: 065
  10. TORADOL [Concomitant]
     Route: 065
  11. DURACT [Concomitant]
     Route: 065
  12. VANTIN [Concomitant]
     Route: 065
  13. LYRICA [Concomitant]
     Route: 065
  14. CYMBALTA [Concomitant]
     Route: 065
  15. GABAPENTIN [Concomitant]
     Route: 065
  16. AMITRIPTYLINE [Concomitant]
     Route: 065
  17. OXYCODONE HCL AND ACETAMINOPHEN [Concomitant]
     Route: 065
  18. HUMOLOG INSULIN [Concomitant]
     Dosage: 10 UNITS, 32 UNITS, 36 UNITS DAILY
     Route: 058
  19. LIPITOR [Concomitant]
     Route: 065
  20. ZANTAC [Concomitant]
     Route: 048
  21. LANTUS [Concomitant]
     Dosage: 20 UNITS-35 UNITS
     Route: 058
  22. VYTORIN [Concomitant]
     Route: 065
  23. ASPIRIN [Concomitant]
     Route: 048
  24. AMBIEN [Concomitant]
     Dosage: 0.5 MG-5 MG
     Route: 065

REACTIONS (10)
  - ABDOMINAL PAIN [None]
  - CHEST PAIN [None]
  - DIABETES MELLITUS [None]
  - DIABETES MELLITUS INADEQUATE CONTROL [None]
  - DIZZINESS [None]
  - FLANK PAIN [None]
  - HYPERGLYCAEMIA [None]
  - HYPERLIPIDAEMIA [None]
  - PAIN IN EXTREMITY [None]
  - SUICIDAL IDEATION [None]
